FAERS Safety Report 4995084-6 (Version None)
Quarter: 2006Q2

REPORT INFORMATION
  Report Type: 
  Country: None (occurrence: None)
  Receive Date: 20060503
  Receipt Date: 20060420
  Transmission Date: 20061013
  Serious: Yes (Other)
  Sender: FDA-Public Use
  Company Number: 2006045900

PATIENT
  Sex: Female
  Weight: 56.6996 kg

DRUGS (2)
  1. DETROL LA [Suspect]
     Indication: HYPERTONIC BLADDER
     Dosage: 4 MG (4 MG, 1 IN 1 D)
  2. MOBIC [Suspect]
     Indication: ARTHRITIS

REACTIONS (8)
  - ARTHRITIS [None]
  - DIFFICULTY IN WALKING [None]
  - DRY MOUTH [None]
  - GASTROOESOPHAGEAL REFLUX DISEASE [None]
  - INCONTINENCE [None]
  - MALAISE [None]
  - PAIN IN EXTREMITY [None]
  - SPINAL COLUMN STENOSIS [None]
